FAERS Safety Report 10261354 (Version 1)
Quarter: 2014Q2

REPORT INFORMATION
  Report Type: Spontaneous
  Country: GB (occurrence: None)
  Receive Date: 20140623
  Receipt Date: 20140623
  Transmission Date: 20141212
  Serious: Yes (Disabling)
  Sender: FDA-Public Use
  Company Number: AUR-APL-2014-06567

PATIENT
  Age: 67 Year
  Sex: Female
  Weight: 73 kg

DRUGS (2)
  1. SIMVASTATIN [Suspect]
     Indication: BLOOD CHOLESTEROL INCREASED
     Route: 048
  2. AMLODIPINE (AMLODIPINE) [Concomitant]

REACTIONS (6)
  - Spinal cord injury [None]
  - Hyperaesthesia [None]
  - Feeling cold [None]
  - Hypoaesthesia [None]
  - Hypoaesthesia [None]
  - Discomfort [None]
